FAERS Safety Report 7544487-4 (Version None)
Quarter: 2011Q2

REPORT INFORMATION
  Report Type: 
  Country: None (occurrence: None)
  Receive Date: 20110613
  Receipt Date: 20110413
  Transmission Date: 20111010
  Serious: Yes (Hospitalization)
  Sender: FDA-Public Use
  Company Number: PHHO2010AT08111

PATIENT
  Sex: Male
  Weight: 79 kg

DRUGS (5)
  1. BLINDED ALISKIREN [Suspect]
     Dosage: CODE NOT BROKEN
     Route: 048
     Dates: start: 20090910, end: 20091002
  2. ENALAPRIL MALEATE [Suspect]
     Indication: CARDIAC FAILURE
     Dosage: UNK
     Route: 048
     Dates: start: 20090610, end: 20090910
  3. ENALAPRIL MALEATE [Suspect]
     Dosage: CODE NOT BROKEN
     Route: 048
     Dates: start: 20090910, end: 20091002
  4. BLINDED NO TREATMENT RECEIVED [Suspect]
     Dosage: CODE NOT BROKEN
     Route: 048
     Dates: start: 20090910, end: 20091002
  5. ALISKIREN [Suspect]
     Indication: CARDIAC FAILURE
     Dosage: UNK
     Route: 048
     Dates: start: 20090820, end: 20090910

REACTIONS (5)
  - PULMONARY OEDEMA [None]
  - CONGESTIVE CARDIOMYOPATHY [None]
  - DISEASE PROGRESSION [None]
  - CARDIAC FAILURE CHRONIC [None]
  - TACHYCARDIA [None]
